FAERS Safety Report 9232623 (Version 1)
Quarter: 2013Q2

REPORT INFORMATION
  Report Type: Spontaneous
  Country: US (occurrence: None)
  Receive Date: 20130415
  Receipt Date: 20130415
  Transmission Date: 20140414
  Serious: Yes (Other)
  Sender: FDA-Public Use
  Company Number: None

PATIENT
  Age: 17 Year
  Sex: Female
  Weight: 49.9 kg

DRUGS (2)
  1. ETHINYL ESTRADIOL [Suspect]
     Indication: NAUSEA
     Dosage: 1 TAB PO DAILY
     Route: 048
     Dates: start: 20130401, end: 20130411
  2. ETHINYL ESTRADIOL [Suspect]
     Indication: VOMITING
     Dosage: 1 TAB PO DAILY
     Route: 048
     Dates: start: 20130401, end: 20130411

REACTIONS (2)
  - Nausea [None]
  - Vomiting [None]
